FAERS Safety Report 25689163 (Version 1)
Quarter: 2025Q3

REPORT INFORMATION
  Report Type: Spontaneous
  Country: TH (occurrence: TH)
  Receive Date: 20250818
  Receipt Date: 20250818
  Transmission Date: 20251021
  Serious: Yes (Hospitalization)
  Sender: MERCK SHARP & DOHME LLC
  Company Number: TH-009507513-2318472

PATIENT
  Age: 85 Year
  Sex: Female

DRUGS (1)
  1. KEYTRUDA [Suspect]
     Active Substance: PEMBROLIZUMAB
     Indication: Non-small cell lung cancer
     Dosage: 100 MG, EVERY 3 WEEKS
     Route: 042
     Dates: start: 20250723

REACTIONS (5)
  - Red blood cells urine [Unknown]
  - Haematological infection [Unknown]
  - Electrolyte imbalance [Unknown]
  - Renal function test abnormal [Unknown]
  - Blood albumin decreased [Unknown]

NARRATIVE: CASE EVENT DATE: 20250101
